FAERS Safety Report 7153646-4 (Version None)
Quarter: 2010Q4

REPORT INFORMATION
  Report Type: 
  Country: None (occurrence: None)
  Receive Date: 20101123
  Receipt Date: 20101008
  Transmission Date: 20110411
  Serious: No
  Sender: FDA-Public Use
  Company Number: 020235

PATIENT
  Sex: Female

DRUGS (2)
  1. CIMZIA [Suspect]
     Indication: CROHN'S DISEASE
     Dosage: SUBCUTANEOUS
     Route: 058
     Dates: start: 20090509
  2. PREDNISONE [Suspect]
     Dosage: 20 MG QD ORAL, TAPERED DOSE ORAL
     Route: 048

REACTIONS (2)
  - FATIGUE [None]
  - OROPHARYNGEAL PAIN [None]
